FAERS Safety Report 8948975 (Version 1)
Quarter: 2012Q4

REPORT INFORMATION
  Report Type: 
  Country: GB (occurrence: GB)
  Receive Date: 20121206
  Receipt Date: 20121206
  Transmission Date: 20130627
  Serious: Yes (Other)
  Sender: FDA-Public Use
  Company Number: GB-009507513-1212GBR000786

PATIENT
  Age: 28 Year
  Sex: Female
  Weight: 55.72 kg

DRUGS (1)
  1. NEXPLANON [Suspect]
     Indication: CONTRACEPTION
     Dosage: UNK
     Route: 059
     Dates: start: 20120910, end: 20121120

REACTIONS (3)
  - Thrombosis [Unknown]
  - Menorrhagia [Not Recovered/Not Resolved]
  - Vaginal haemorrhage [Unknown]
